FAERS Safety Report 5002222-8 (Version None)
Quarter: 2006Q2

REPORT INFORMATION
  Report Type: 
  Country: None (occurrence: None)
  Receive Date: 20060511
  Receipt Date: 20060511
  Transmission Date: 20061013
  Serious: Yes (Disabling)
  Sender: FDA-Public Use
  Company Number: None

PATIENT
  Age: 61 Year
  Sex: Female

DRUGS (13)
  1. WARFARIN SODIUM [Suspect]
     Indication: CAROTID ARTERY STENOSIS
     Dosage: 5MG EXCEPT 2.5 TU-TH-SA
  2. WARFARIN SODIUM [Suspect]
     Indication: CEREBROVASCULAR ACCIDENT
     Dosage: 5MG EXCEPT 2.5 TU-TH-SA
  3. MOXIFLOXACIN HCL [Suspect]
     Indication: UPPER RESPIRATORY TRACT INFECTION
     Dosage: 400MG PO QD
     Route: 048
     Dates: start: 20060316, end: 20060328
  4. ACETAMINOPHEN [Concomitant]
  5. BISACODYL [Concomitant]
  6. CODEINE 10MG/GUAIFENESIN [Concomitant]
  7. DILTIAZEM [Concomitant]
  8. LISINOPRIL [Concomitant]
  9. MIRTAZAPINE [Concomitant]
  10. OXYCODONE 5MG + ACETAMIN. [Concomitant]
  11. SIMVASTATIN [Concomitant]
  12. TRAZODONE HCL [Concomitant]
  13. WARFARIN SODIUM [Concomitant]

REACTIONS (2)
  - ALCOHOL USE [None]
  - INTERNATIONAL NORMALISED RATIO INCREASED [None]
